FAERS Safety Report 7984698-7 (Version None)
Quarter: 2011Q4

REPORT INFORMATION
  Report Type: 
  Country: None (occurrence: None)
  Receive Date: 20111216
  Receipt Date: 20111014
  Transmission Date: 20120403
  Serious: No
  Sender: FDA-Public Use
  Company Number: US-GLAXOSMITHKLINE-A0949772A

PATIENT
  Age: 69 Year
  Sex: Male

DRUGS (6)
  1. AMLODIPINE [Concomitant]
  2. AMITIZA [Concomitant]
  3. PROMACTA [Suspect]
     Indication: AUTOIMMUNE THROMBOCYTOPENIA
     Dosage: 50MG PER DAY
     Route: 048
     Dates: start: 20090801
  4. LIPITOR [Concomitant]
  5. XANAX [Concomitant]
  6. LISINOPRIL [Concomitant]

REACTIONS (3)
  - ARTHROPATHY [None]
  - MYALGIA [None]
  - HOT FLUSH [None]
